FAERS Safety Report 8173730-6 (Version None)
Quarter: 2012Q1

REPORT INFORMATION
  Report Type: 
  Country: None (occurrence: None)
  Receive Date: 20120229
  Receipt Date: 20120217
  Transmission Date: 20120608
  Serious: Yes (Death)
  Sender: FDA-Public Use
  Company Number: DK-ASTRAZENECA-2012SE13286

PATIENT
  Age: 31259 Day
  Sex: Female

DRUGS (2)
  1. ARIXTRA [Concomitant]
     Indication: ACUTE MYOCARDIAL INFARCTION
     Dates: start: 20120210, end: 20120215
  2. BRILIQUE [Suspect]
     Indication: ACUTE MYOCARDIAL INFARCTION
     Route: 048

REACTIONS (1)
  - SUBDURAL HAEMATOMA [None]
